FAERS Safety Report 8231857-4 (Version None)
Quarter: 2012Q1

REPORT INFORMATION
  Report Type: 
  Country: None (occurrence: None)
  Receive Date: 20120323
  Receipt Date: 20120316
  Transmission Date: 20120608
  Serious: Yes (Hospitalization)
  Sender: FDA-Public Use
  Company Number: DE-AMGEN-DEUCT2012017103

PATIENT
  Age: 55 Year
  Sex: Male

DRUGS (4)
  1. CAPECITABINE [Concomitant]
     Dosage: 837.98 MG/M2, UNK
     Route: 048
     Dates: start: 20110712, end: 20120102
  2. CISPLATIN [Concomitant]
     Dosage: 58 MG/M2, UNK
     Route: 042
     Dates: start: 20110711, end: 20111216
  3. EPIRUBICIN [Concomitant]
     Dosage: 50 MG/M2, UNK
     Route: 042
     Dates: start: 20110711, end: 20111216
  4. PANITUMUMAB [Suspect]
     Indication: GASTROOESOPHAGEAL CANCER
     Dosage: 9 MG/KG, UNK
     Route: 042
     Dates: start: 20110711, end: 20111216

REACTIONS (2)
  - ENTEROCOLITIS [None]
  - DEHYDRATION [None]
